FAERS Safety Report 9308096 (Version 5)
Quarter: 2015Q3

REPORT INFORMATION
  Report Type: Spontaneous
  Country: US (occurrence: US)
  Receive Date: 20130524
  Receipt Date: 20150813
  Transmission Date: 20151125
  Serious: Yes (Hospitalization, Disabling, Other)
  Sender: FDA-Public Use
  Company Number: US-009507513-1305USA011624

PATIENT
  Sex: Male
  Weight: 143 kg

DRUGS (1)
  1. PROPECIA [Suspect]
     Active Substance: FINASTERIDE
     Indication: ALOPECIA
     Dosage: 1 MG, QD
     Route: 048
     Dates: start: 1999

REACTIONS (62)
  - Prostatic operation [Unknown]
  - Amnesia [Not Recovered/Not Resolved]
  - Sexual dysfunction [Not Recovered/Not Resolved]
  - Semen volume decreased [Not Recovered/Not Resolved]
  - Hepatic steatosis [Unknown]
  - Haematuria [Unknown]
  - Pain in extremity [Unknown]
  - Arthralgia [Unknown]
  - Chills [Unknown]
  - Blood bilirubin increased [Unknown]
  - Nephrolithiasis [Unknown]
  - Adverse event [Unknown]
  - Prostatic operation [Unknown]
  - Anxiety [Not Recovered/Not Resolved]
  - Renal cyst [Unknown]
  - Pulmonary mass [Unknown]
  - Headache [Unknown]
  - Animal bite [Unknown]
  - Abdominal pain [Unknown]
  - Toothache [Unknown]
  - Eye operation [Unknown]
  - Disturbance in attention [Not Recovered/Not Resolved]
  - Testicular pain [Not Recovered/Not Resolved]
  - Skin abrasion [Unknown]
  - Protein urine present [Unknown]
  - Adverse event [Not Recovered/Not Resolved]
  - Brain injury [Not Recovered/Not Resolved]
  - General physical health deterioration [Not Recovered/Not Resolved]
  - Aspartate aminotransferase increased [Unknown]
  - Thinking abnormal [Not Recovered/Not Resolved]
  - Hiatus hernia [Unknown]
  - Cardiac failure congestive [Unknown]
  - Peripheral swelling [Unknown]
  - Myalgia [Unknown]
  - Hyperhidrosis [Unknown]
  - Penile size reduced [Not Recovered/Not Resolved]
  - Hypertrichosis [Not Recovered/Not Resolved]
  - Alanine aminotransferase increased [Unknown]
  - Gynaecomastia [Not Recovered/Not Resolved]
  - Penile haemorrhage [Unknown]
  - Gout [Unknown]
  - Chest pain [Unknown]
  - Hypoaesthesia [Unknown]
  - Abasia [Unknown]
  - Poisoning [Unknown]
  - Musculoskeletal stiffness [Unknown]
  - Abdominal pain upper [Unknown]
  - Injury [Not Recovered/Not Resolved]
  - Erectile dysfunction [Not Recovered/Not Resolved]
  - Loss of libido [Not Recovered/Not Resolved]
  - Vascular calcification [Unknown]
  - Chronic obstructive pulmonary disease [Unknown]
  - Vision blurred [Unknown]
  - Amylase increased [Unknown]
  - Depression [Not Recovered/Not Resolved]
  - Rib fracture [Unknown]
  - Testicular disorder [Not Recovered/Not Resolved]
  - Painful ejaculation [Not Recovered/Not Resolved]
  - Penis injury [Not Recovered/Not Resolved]
  - Tooth loss [Not Recovered/Not Resolved]
  - Back pain [Unknown]
  - Adrenal disorder [Unknown]

NARRATIVE: CASE EVENT DATE: 2000
